FAERS Safety Report 17263792 (Version 1)
Quarter: 2020Q1

REPORT INFORMATION
  Report Type: Spontaneous
  Country: ID (occurrence: ID)
  Receive Date: 20200113
  Receipt Date: 20200113
  Transmission Date: 20200409
  Serious: Yes (Other)
  Sender: FDA-Public Use
  Company Number: ID-ASTRAZENECA-2020SE04181

PATIENT
  Age: 64 Year
  Sex: Male

DRUGS (1)
  1. SYMBICORT [Suspect]
     Active Substance: BUDESONIDE\FORMOTEROL FUMARATE DIHYDRATE
     Indication: ASTHMA
     Dosage: 1 INHALATION IN THE MORNING AND 1 INHALATION IN THE EVENING
     Route: 055
     Dates: start: 20190202

REACTIONS (5)
  - Cold sweat [Unknown]
  - Dizziness [Unknown]
  - Insomnia [Unknown]
  - Dyspnoea [Unknown]
  - Headache [Unknown]
